FAERS Safety Report 9839782 (Version 1)
Quarter: 2014Q1

REPORT INFORMATION
  Report Type: Spontaneous
  Country: US (occurrence: US)
  Receive Date: 20140124
  Receipt Date: 20140124
  Transmission Date: 20141002
  Serious: No
  Sender: FDA-Public Use
  Company Number: US-BIOGENIDEC-2014BI006213

PATIENT
  Age: 22 Year
  Sex: Female

DRUGS (11)
  1. TECFIDERA [Suspect]
     Indication: MULTIPLE SCLEROSIS
     Route: 048
     Dates: start: 201311
  2. SINGULAIR [Concomitant]
  3. METFORMIN [Concomitant]
  4. TOPRIATE [Concomitant]
  5. LISINOPRIL [Concomitant]
  6. LEVOTHYROXINE [Concomitant]
  7. IRON [Concomitant]
  8. VITAMIN B12 [Concomitant]
  9. LORATIDINE [Concomitant]
  10. BYETTA [Concomitant]
  11. OMEGA 3 [Concomitant]

REACTIONS (2)
  - Influenza [Unknown]
  - Migraine [Unknown]
